FAERS Safety Report 8737951 (Version 6)
Quarter: 2014Q1

REPORT INFORMATION
  Report Type: Spontaneous
  Country: US (occurrence: US)
  Receive Date: 20120823
  Receipt Date: 20140204
  Transmission Date: 20141002
  Serious: Yes (Hospitalization, Disabling, Other)
  Sender: FDA-Public Use
  Company Number: US-009507513-1208USA004420

PATIENT
  Sex: Female
  Weight: 68.27 kg

DRUGS (7)
  1. FOSAMAX [Suspect]
     Indication: OSTEOPOROSIS
     Dosage: 70 MG, UNK
     Route: 048
     Dates: end: 20060726
  2. FOSAMAX [Suspect]
     Indication: OSTEOPENIA
  3. FOSAMAX [Suspect]
     Indication: OSTEOPOROSIS
     Dosage: UNK
     Route: 048
     Dates: start: 199504, end: 201101
  4. FOSAMAX [Suspect]
     Indication: OSTEOPENIA
  5. FOSAMAX PLUS D [Suspect]
     Indication: OSTEOPOROSIS
     Route: 048
  6. FOSAMAX PLUS D [Suspect]
     Indication: OSTEOPENIA
  7. BONIVA [Suspect]
     Dosage: 150 MG, UNK
     Dates: start: 20060726, end: 2010

REACTIONS (47)
  - Femur fracture [Unknown]
  - Femur fracture [Unknown]
  - Femur fracture [Unknown]
  - Intramedullary rod insertion [Unknown]
  - Open reduction of fracture [Unknown]
  - Open reduction of fracture [Unknown]
  - Low turnover osteopathy [Unknown]
  - Joint injury [Recovered/Resolved]
  - Skeletal injury [Unknown]
  - Osteonecrosis of jaw [Unknown]
  - Endodontic procedure [Unknown]
  - Dental implantation [Unknown]
  - Wrist fracture [Unknown]
  - Contusion [Unknown]
  - Corneal transplant [Unknown]
  - Depression [Unknown]
  - Anxiety [Unknown]
  - Gastrointestinal haemorrhage [Unknown]
  - Diverticulum [Unknown]
  - Adenotonsillectomy [Unknown]
  - Foot operation [Unknown]
  - Bladder repair [Unknown]
  - Arthritis [Unknown]
  - Colonoscopy [Unknown]
  - Rib fracture [Recovered/Resolved]
  - Spinal osteoarthritis [Unknown]
  - Osteoarthritis [Unknown]
  - Tooth extraction [Unknown]
  - Tooth extraction [Unknown]
  - Endodontic procedure [Unknown]
  - Endodontic procedure [Unknown]
  - Gingivectomy [Unknown]
  - Endodontic procedure [Unknown]
  - Gingivectomy [Unknown]
  - Tooth extraction [Unknown]
  - Gingivectomy [Unknown]
  - Endodontic procedure [Unknown]
  - Periodontal disease [Unknown]
  - Tooth repair [Unknown]
  - Corneal transplant [Unknown]
  - Intraocular lens implant [Unknown]
  - Pain [Not Recovered/Not Resolved]
  - Urinary incontinence [Unknown]
  - Rectal haemorrhage [Unknown]
  - Endotracheal intubation complication [Not Recovered/Not Resolved]
  - Gastrooesophageal reflux disease [Unknown]
  - Arthralgia [Unknown]
